FAERS Safety Report 7296183-9 (Version None)
Quarter: 2011Q1

REPORT INFORMATION
  Report Type: 
  Country: None (occurrence: None)
  Receive Date: 20110216
  Receipt Date: 20110210
  Transmission Date: 20110831
  Serious: Yes (Life-Threatening, Other)
  Sender: FDA-Public Use
  Company Number: DE-PFIZER INC-2011026123

PATIENT
  Age: 12 Year
  Sex: Male

DRUGS (5)
  1. DOXORUBICIN HCL [Suspect]
     Indication: BONE SARCOMA
     Dosage: 75 MG/M2, UNK
  2. CISPLATIN [Suspect]
     Indication: BONE SARCOMA
     Dosage: 120 MG/M2, UNK
  3. METHOTREXATE SODIUM [Suspect]
     Indication: BONE SARCOMA
     Dosage: 12 G/M2
  4. ETOPOSIDE [Suspect]
     Indication: BONE SARCOMA
     Dosage: UNK
  5. IFOSFAMIDE [Suspect]
     Indication: BONE SARCOMA
     Dosage: UNK

REACTIONS (6)
  - BONE MARROW FAILURE [None]
  - DRUG CLEARANCE DECREASED [None]
  - HEPATOTOXICITY [None]
  - COAGULOPATHY [None]
  - RENAL FAILURE ACUTE [None]
  - RENAL FAILURE [None]
